FAERS Safety Report 16327334 (Version 1)
Quarter: 2019Q2

REPORT INFORMATION
  Report Type: Spontaneous
  Country: US (occurrence: US)
  Receive Date: 20190517
  Receipt Date: 20190517
  Transmission Date: 20190711
  Serious: No
  Sender: FDA-Public Use
  Company Number: US-009507513-1905USA007475

PATIENT

DRUGS (6)
  1. CEFTAROLINE FOSAMIL ACETATE [Concomitant]
     Active Substance: CEFTAROLINE FOSAMIL
     Indication: ENDOCARDITIS BACTERIAL
     Dosage: 400 MILLIGRAM, Q12H
  2. CUBICIN [Suspect]
     Active Substance: DAPTOMYCIN
     Indication: ENDOCARDITIS BACTERIAL
  3. CUBICIN [Suspect]
     Active Substance: DAPTOMYCIN
     Indication: STAPHYLOCOCCAL INFECTION
  4. CEFTAROLINE FOSAMIL ACETATE [Concomitant]
     Active Substance: CEFTAROLINE FOSAMIL
     Indication: STAPHYLOCOCCAL INFECTION
  5. VANCOMYCIN [Concomitant]
     Active Substance: VANCOMYCIN
     Indication: STAPHYLOCOCCAL INFECTION
  6. VANCOMYCIN [Concomitant]
     Active Substance: VANCOMYCIN
     Indication: ENDOCARDITIS BACTERIAL

REACTIONS (1)
  - Product use in unapproved indication [Unknown]
